FAERS Safety Report 17751541 (Version 8)
Quarter: 2022Q2

REPORT INFORMATION
  Report Type: Spontaneous
  Country: US (occurrence: US)
  Receive Date: 20200506
  Receipt Date: 20220630
  Transmission Date: 20220720
  Serious: Yes (Other)
  Sender: FDA-Public Use
  Company Number: US-PFIZER INC-2020179559

PATIENT
  Age: 63 Year
  Sex: Female
  Weight: 58.51 kg

DRUGS (5)
  1. TOVIAZ [Suspect]
     Active Substance: FESOTERODINE FUMARATE
     Indication: Urinary incontinence
     Dosage: 8 MG
  2. RALOXIFENE [Concomitant]
     Active Substance: RALOXIFENE
     Indication: Osteoporosis
     Dosage: UNK
     Dates: start: 2019
  3. RALOXIFENE [Concomitant]
     Active Substance: RALOXIFENE
     Indication: Bone density abnormal
  4. ROSUVASTATIN [Concomitant]
     Active Substance: ROSUVASTATIN
     Indication: Blood cholesterol abnormal
     Dosage: 10 MG
  5. DOXYCYCLINE [Concomitant]
     Active Substance: DOXYCYCLINE
     Indication: Sinusitis
     Dosage: UNK
     Dates: start: 2022, end: 20220608

REACTIONS (8)
  - Neuropathy peripheral [Unknown]
  - Therapeutic product effect decreased [Unknown]
  - Thinking abnormal [Unknown]
  - Peripheral swelling [Unknown]
  - Frustration tolerance decreased [Unknown]
  - Cough [Unknown]
  - Drug hypersensitivity [Unknown]
  - Product dispensing error [Unknown]
